FAERS Safety Report 6757717-3 (Version None)
Quarter: 2010Q2

REPORT INFORMATION
  Report Type: 
  Country: None (occurrence: None)
  Receive Date: 20100524
  Receipt Date: 20100308
  Transmission Date: 20101027
  Serious: No
  Sender: FDA-Public Use
  Company Number: 008398

PATIENT
  Weight: 81.1 kg

DRUGS (9)
  1. CIMZIA [Suspect]
     Indication: CROHN'S DISEASE
     Dosage: (400MG, EVERY 2 WEEKS SUBCUTANEOUS)
     Route: 058
     Dates: start: 20100127
  2. SUCRALFATE [Concomitant]
  3. DICYCLOMINE HYDROCHLORIDE [Concomitant]
  4. AZATHIOPRINE [Concomitant]
  5. AMITRIPTYLINE [Concomitant]
  6. PHENERGAN [Concomitant]
  7. ENTOCORT EC [Concomitant]
  8. DAILY MULTIVITAMIN [Concomitant]
  9. ACETAMINOPHEN [Concomitant]

REACTIONS (4)
  - CONTUSION [None]
  - FEELING HOT [None]
  - NODULE ON EXTREMITY [None]
  - PAIN [None]
